FAERS Safety Report 15776545 (Version 1)
Quarter: 2018Q4

REPORT INFORMATION
  Report Type: Spontaneous
  Country: US (occurrence: US)
  Receive Date: 20181231
  Receipt Date: 20181231
  Transmission Date: 20190205
  Serious: Yes (Other)
  Sender: FDA-Public Use
  Company Number: US-TEVA-2018-US-994364

PATIENT
  Age: 44 Year
  Sex: Female

DRUGS (1)
  1. AJOVY [Suspect]
     Active Substance: FREMANEZUMAB-VFRM
     Dosage: 225 MG

REACTIONS (4)
  - Loss of consciousness [Recovering/Resolving]
  - Malaise [Recovering/Resolving]
  - Supraventricular tachycardia [Recovering/Resolving]
  - Heart rate increased [Recovering/Resolving]
